FAERS Safety Report 7341186-9 (Version None)
Quarter: 2011Q1

REPORT INFORMATION
  Report Type: 
  Country: None (occurrence: None)
  Receive Date: 20110309
  Receipt Date: 20110301
  Transmission Date: 20110831
  Serious: Yes (Other)
  Sender: FDA-Public Use
  Company Number: B0704496A

PATIENT
  Sex: Male

DRUGS (5)
  1. AVODART [Suspect]
     Route: 065
  2. UNKNOWN MEDICATION [Suspect]
     Route: 065
  3. UNKNOWN MEDICATION [Suspect]
     Route: 065
  4. UNKNOWN MEDICATION [Suspect]
     Route: 065
  5. UNKNOWN MEDICATION [Suspect]
     Route: 065

REACTIONS (1)
  - ANAEMIA [None]
